FAERS Safety Report 8487842-0 (Version None)
Quarter: 2012Q3

REPORT INFORMATION
  Report Type: 
  Country: None (occurrence: None)
  Receive Date: 20120705
  Receipt Date: 20120626
  Transmission Date: 20120928
  Serious: Yes (Hospitalization)
  Sender: FDA-Public Use
  Company Number: GB-SANOFI-AVENTIS-2012SA042447

PATIENT
  Age: 64 Year
  Sex: Female
  Weight: 100.91 kg

DRUGS (3)
  1. PLAQUENIL [Suspect]
     Route: 048
     Dates: start: 20120515, end: 20120615
  2. LEVOTHYROXINE SODIUM [Concomitant]
     Indication: HYPOTHYROIDISM
     Route: 048
     Dates: start: 20050101
  3. PLAQUENIL [Suspect]
     Route: 048
     Dates: start: 20120515, end: 20120615

REACTIONS (7)
  - DYSPNOEA [None]
  - CHEST DISCOMFORT [None]
  - CHEST PAIN [None]
  - FATIGUE [None]
  - NECK PAIN [None]
  - DIZZINESS [None]
  - DIARRHOEA [None]
